FAERS Safety Report 12468519 (Version 1)
Quarter: 2016Q2

REPORT INFORMATION
  Report Type: Spontaneous
  Country: US (occurrence: US)
  Receive Date: 20160615
  Receipt Date: 20160615
  Transmission Date: 20160815
  Serious: No
  Sender: FDA-Public Use
  Company Number: US-PERNIX THERAPEUTICS-2016PT000053

PATIENT

DRUGS (1)
  1. TREXIMET [Suspect]
     Active Substance: NAPROXEN SODIUM\SUMATRIPTAN SUCCINATE
     Indication: MIGRAINE
     Dosage: 1 TABLET, ONCE
     Route: 048
     Dates: start: 20160229, end: 20160229

REACTIONS (4)
  - Insomnia [Unknown]
  - Paraesthesia [Unknown]
  - Muscle tightness [Not Recovered/Not Resolved]
  - Drug ineffective [Unknown]

NARRATIVE: CASE EVENT DATE: 20160229
